FAERS Safety Report 8340209 (Version 2)
Quarter: 2012Q4

REPORT INFORMATION
  Report Type: 
  Country: AR (occurrence: AR)
  Receive Date: 20120117
  Receipt Date: 20121102
  Transmission Date: 20130627
  Serious: Yes (Other)
  Sender: FDA-Public Use
  Company Number: PHHY2012AR002473

PATIENT
  Sex: Female

DRUGS (2)
  1. DIOVAN D [Suspect]
     Indication: BLOOD PRESSURE
     Dosage: 160mg of vals and unspecified mg of hydro daily
     Dates: start: 2009
  2. VENOSMIL [Concomitant]
     Dosage: UNK

REACTIONS (5)
  - Thrombosis [Recovered/Resolved]
  - Tachycardia [Recovered/Resolved]
  - Hypertension [Recovered/Resolved]
  - Malaise [Unknown]
  - Oedema peripheral [Recovering/Resolving]
